FAERS Safety Report 7782514-X (Version None)
Quarter: 2011Q3

REPORT INFORMATION
  Report Type: 
  Country: None (occurrence: None)
  Receive Date: 20110928
  Receipt Date: 20110915
  Transmission Date: 20111222
  Serious: Yes (Hospitalization)
  Sender: FDA-Public Use
  Company Number: CA-ELI_LILLY_AND_COMPANY-CA201109005068

PATIENT
  Sex: Male

DRUGS (2)
  1. ZYPREXA [Suspect]
     Dosage: 10 MG, UNK
  2. ZYPREXA [Suspect]
     Dosage: 15 MG, UNK

REACTIONS (1)
  - HOSPITALISATION [None]
